FAERS Safety Report 5756754-5 (Version None)
Quarter: 2008Q2

REPORT INFORMATION
  Report Type: 
  Country: None (occurrence: None)
  Receive Date: 20080603
  Receipt Date: 20080522
  Transmission Date: 20081010
  Serious: Yes (Death, Hospitalization)
  Sender: FDA-Public Use
  Company Number: JP-AMGEN-US275525

PATIENT
  Sex: Female
  Weight: 45 kg

DRUGS (4)
  1. ENBREL [Suspect]
     Indication: RHEUMATOID ARTHRITIS
     Route: 058
     Dates: start: 20070802, end: 20080411
  2. PREDNISOLONE [Concomitant]
     Indication: RHEUMATOID ARTHRITIS
     Route: 048
  3. FOLIAMIN [Concomitant]
     Route: 048
     Dates: start: 20070903, end: 20080411
  4. RHEUMATREX [Concomitant]
     Indication: RHEUMATOID ARTHRITIS
     Route: 065

REACTIONS (4)
  - CANDIDIASIS [None]
  - CARDIAC FAILURE [None]
  - CEREBRAL INFARCTION [None]
  - PULMONARY TUBERCULOSIS [None]
